FAERS Safety Report 6473778-3 (Version None)
Quarter: 2009Q4

REPORT INFORMATION
  Report Type: 
  Country: None (occurrence: None)
  Receive Date: 20091204
  Receipt Date: 20091123
  Transmission Date: 20100525
  Serious: Yes (Other)
  Sender: FDA-Public Use
  Company Number: US-ROCHE-401254

PATIENT
  Sex: Male
  Weight: 3.1 kg

DRUGS (9)
  1. COPEGUS [Suspect]
     Indication: HEPATITIS C
     Route: 064
     Dates: start: 20040323, end: 20040828
  2. PEGASYS [Suspect]
     Indication: HEPATITIS C
     Route: 064
     Dates: start: 20040323, end: 20040828
  3. SEROQUEL [Concomitant]
     Dates: start: 20041001, end: 20041011
  4. ABILIFY [Concomitant]
     Dates: start: 20041012, end: 20041018
  5. KLONOPIN [Concomitant]
     Dates: start: 20041012, end: 20041018
  6. OXYCODONE HCL [Concomitant]
     Dates: start: 20040926, end: 20041004
  7. IBUPROFEN [Concomitant]
     Dates: start: 20040926, end: 20041004
  8. ADVAIR DISKUS 100/50 [Concomitant]
     Indication: ASTHMA
     Dates: start: 20040822
  9. ALBUTEROL [Concomitant]
     Indication: ASTHMA
     Dates: start: 20040822

REACTIONS (2)
  - PLACENTA PRAEVIA [None]
  - PREMATURE RUPTURE OF MEMBRANES [None]
